FAERS Safety Report 17142402 (Version 2)
Quarter: 2019Q4

REPORT INFORMATION
  Report Type: Spontaneous
  Country: DE (occurrence: DE)
  Receive Date: 20191211
  Receipt Date: 20191214
  Transmission Date: 20200122
  Serious: Yes (Hospitalization)
  Sender: FDA-Public Use
  Company Number: DE-MYLANLABS-2019M1120264

PATIENT
  Age: 82 Year
  Sex: Female

DRUGS (11)
  1. MIRTAZAPIN [Concomitant]
     Active Substance: MIRTAZAPINE
     Dosage: 30 MG, 0-0-1.5-0
  2. PANTOPRAZOL                        /01263201/ [Concomitant]
     Active Substance: PANTOPRAZOLE
     Dosage: 40 MG, 1-0-1-0
  3. PHENPROCOUMON [Concomitant]
     Active Substance: PHENPROCOUMON
     Dosage: 3 MG, PAUSIERT SEIT 18.01.2018
  4. METOPROLOL. [Suspect]
     Active Substance: METOPROLOL
     Indication: PRODUCT USED FOR UNKNOWN INDICATION
     Dosage: 95 MG, 1-0-1-0
  5. METAMIZOL                          /06276701/ [Concomitant]
     Active Substance: METAMIZOLE
     Dosage: 1 G, 1-1-1-1
  6. TORASEMID [Concomitant]
     Active Substance: TORSEMIDE
     Dosage: 20 MG, 1-1-0-0
  7. LEVOTHYROXINE SODIUM. [Concomitant]
     Active Substance: LEVOTHYROXINE SODIUM
     Dosage: 125 ?G, 1-0-0-0
  8. ASPIRIN. [Concomitant]
     Active Substance: ASPIRIN
     Dosage: 100 MG, 0-1-0-0
  9. XIPAMIDE [Concomitant]
     Active Substance: XIPAMIDE
     Dosage: 10 MG, 0-1-0-0
  10. FOLIC ACID. [Concomitant]
     Active Substance: FOLIC ACID
     Dosage: 5 MG, 1-0-0-0; MONTAGS
  11. FENTANYL. [Concomitant]
     Active Substance: FENTANYL
     Dosage: 12 ?G, ZULETZT GEWECHSELT AM 22.01.2018, PFLASTER TRANSDERMAL
     Route: 062

REACTIONS (3)
  - Skin ulcer [Unknown]
  - Condition aggravated [Unknown]
  - Peripheral arterial occlusive disease [Unknown]
